FAERS Safety Report 5063025-1 (Version None)
Quarter: 2006Q3

REPORT INFORMATION
  Report Type: 
  Country: None (occurrence: None)
  Receive Date: 20060724
  Receipt Date: 20060714
  Transmission Date: 20061208
  Serious: Yes (Hospitalization)
  Sender: FDA-Public Use
  Company Number: 2006BI010034

PATIENT
  Age: 57 Year
  Sex: Female
  Weight: 79.3795 kg

DRUGS (4)
  1. AVONEX [Suspect]
     Indication: MULTIPLE SCLEROSIS
     Dosage: 30 UG; QW; IM
     Route: 030
     Dates: start: 19970101
  2. AVONEX [Suspect]
     Indication: MULTIPLE SCLEROSIS
     Dosage: SEE IMAGE, IM
     Route: 030
     Dates: end: 20051001
  3. AVONEX [Suspect]
     Indication: MULTIPLE SCLEROSIS
     Dosage: SEE IMAGE, IM
     Route: 030
     Dates: start: 20060401, end: 20060401
  4. AVONEX [Suspect]
     Indication: MULTIPLE SCLEROSIS
     Dosage: SEE IMAGE, IM
     Route: 030
     Dates: start: 20060401

REACTIONS (13)
  - ARTHRALGIA [None]
  - BODY HEIGHT DECREASED [None]
  - CHOLELITHIASIS [None]
  - CONDITION AGGRAVATED [None]
  - FIBROMYALGIA [None]
  - KNEE ARTHROPLASTY [None]
  - MIGRAINE [None]
  - MULTIPLE SCLEROSIS [None]
  - PANIC ATTACK [None]
  - ROTATOR CUFF SYNDROME [None]
  - STRESS [None]
  - TEMPERATURE INTOLERANCE [None]
  - VOMITING [None]
